FAERS Safety Report 10733648 (Version 1)
Quarter: 2015Q1

REPORT INFORMATION
  Report Type: Spontaneous
  Country: RU (occurrence: RU)
  Receive Date: 20150123
  Receipt Date: 20150123
  Transmission Date: 20150721
  Serious: Yes (Hospitalization)
  Sender: FDA-Public Use
  Company Number: RU-ABBVIE-15P-251-1336997-00

PATIENT
  Sex: Female
  Weight: 100 kg

DRUGS (9)
  1. SIBAZON [Concomitant]
     Indication: SCHIZOPHRENIA
  2. COMBIVIR [Suspect]
     Active Substance: LAMIVUDINE\ZIDOVUDINE
     Indication: HIV INFECTION
     Route: 065
  3. NEULEPTIL [Concomitant]
     Active Substance: PERICIAZINE
     Indication: SCHIZOPHRENIA
  4. SEROQUEL [Concomitant]
     Active Substance: QUETIAPINE FUMARATE
     Indication: SCHIZOPHRENIA
  5. CLOPIXOL [Concomitant]
     Active Substance: ZUCLOPENTHIXOL ACETATE
     Indication: SCHIZOPHRENIA
  6. TRUXAL [Concomitant]
     Active Substance: CHLORPROTHIXENE
     Indication: SCHIZOPHRENIA
  7. KALETRA [Suspect]
     Active Substance: LOPINAVIR\RITONAVIR
     Indication: HIV INFECTION
     Route: 065
  8. REYATAZ [Suspect]
     Active Substance: ATAZANAVIR SULFATE
     Indication: HIV INFECTION
     Route: 065
  9. ELICEA [Concomitant]
     Indication: SCHIZOPHRENIA

REACTIONS (15)
  - Alanine aminotransferase increased [Not Recovered/Not Resolved]
  - Aspartate aminotransferase increased [Not Recovered/Not Resolved]
  - Schizophrenia, paranoid type [Not Recovered/Not Resolved]
  - Hallucination, auditory [Not Recovered/Not Resolved]
  - Depression [Unknown]
  - Abnormal behaviour [Recovered/Resolved]
  - Hallucination [Not Recovered/Not Resolved]
  - Vomiting [Not Recovered/Not Resolved]
  - Flat affect [Unknown]
  - Irritability [Unknown]
  - Insomnia [Unknown]
  - Aggression [Unknown]
  - Jaundice [Not Recovered/Not Resolved]
  - Tremor [Unknown]
  - Weight increased [Not Recovered/Not Resolved]

NARRATIVE: CASE EVENT DATE: 2009
